FAERS Safety Report 8262341-X (Version None)
Quarter: 2012Q2

REPORT INFORMATION
  Report Type: 
  Country: None (occurrence: None)
  Receive Date: 20120405
  Receipt Date: 20120327
  Transmission Date: 20120825
  Serious: Yes (Hospitalization)
  Sender: FDA-Public Use
  Company Number: ES-JNJFOC-20120301741

PATIENT
  Sex: Male
  Weight: 84 kg

DRUGS (7)
  1. LEUPROLIDE ACETATE [Concomitant]
     Indication: HORMONE THERAPY
     Route: 065
     Dates: start: 20090722
  2. ABIRATERONE ACETATE [Suspect]
     Route: 048
  3. ABIRATERONE ACETATE [Suspect]
     Indication: PROSTATE CANCER METASTATIC
     Route: 048
     Dates: start: 20111007
  4. PREDNISONE TAB [Suspect]
     Indication: PROSTATE CANCER METASTATIC
     Route: 048
     Dates: start: 20111007
  5. NAPRILENE [Concomitant]
     Route: 065
     Dates: start: 20120124
  6. PREDNISONE TAB [Suspect]
     Route: 048
     Dates: end: 20120227
  7. NAPRILENE [Concomitant]
     Route: 065
     Dates: start: 20111202, end: 20120124

REACTIONS (1)
  - HEPATIC FAILURE [None]
